FAERS Safety Report 14908565 (Version 3)
Quarter: 2021Q1

REPORT INFORMATION
  Report Type: Spontaneous
  Country: US (occurrence: US)
  Receive Date: 20180517
  Receipt Date: 20210303
  Transmission Date: 20210419
  Serious: Yes (Other)
  Sender: FDA-Public Use
  Company Number: US-PFIZER INC-2018202357

PATIENT
  Age: 65 Year
  Sex: Female
  Weight: 81 kg

DRUGS (1)
  1. XELJANZ XR [Suspect]
     Active Substance: TOFACITINIB CITRATE
     Indication: RHEUMATOID ARTHRITIS
     Dosage: 11 MG, 1X/DAY
     Route: 048
     Dates: start: 201804

REACTIONS (6)
  - Upper respiratory tract infection [Recovered/Resolved]
  - Sinusitis [Unknown]
  - Bronchitis [Unknown]
  - Pain [Unknown]
  - Pneumonia [Unknown]
  - Weight increased [Unknown]

NARRATIVE: CASE EVENT DATE: 201805
